FAERS Safety Report 21229088 (Version 1)
Quarter: 2022Q3

REPORT INFORMATION
  Report Type: Spontaneous
  Country: VN (occurrence: None)
  Receive Date: 20220818
  Receipt Date: 20220818
  Transmission Date: 20221026
  Serious: Yes (Other)
  Sender: FDA-Public Use
  Company Number: VN-ROCHE-3159278

PATIENT
  Age: 65 Year
  Sex: Male

DRUGS (1)
  1. ATEZOLIZUMAB [Suspect]
     Active Substance: ATEZOLIZUMAB
     Indication: Lung neoplasm malignant
     Dosage: BEING TREATED FOR 8 CYCLES DURING A 6-MONTH PERIOD
     Route: 065
     Dates: start: 202103

REACTIONS (1)
  - Pleural effusion [Unknown]
